FAERS Safety Report 6576015-4 (Version None)
Quarter: 2010Q1

REPORT INFORMATION
  Report Type: 
  Country: None (occurrence: None)
  Receive Date: 20100209
  Receipt Date: 20100127
  Transmission Date: 20100710
  Serious: Yes (Disabling, Other)
  Sender: FDA-Public Use
  Company Number: PHEH2010US00602

PATIENT

DRUGS (1)
  1. RECLAST [Suspect]
     Indication: BREAST CANCER METASTATIC
     Dosage: UNK, QM
     Route: 042

REACTIONS (6)
  - FOCAL SEGMENTAL GLOMERULOSCLEROSIS [None]
  - INAPPROPRIATE SCHEDULE OF DRUG ADMINISTRATION [None]
  - OEDEMA [None]
  - PROTEINURIA [None]
  - RENAL FAILURE [None]
  - URINE OUTPUT DECREASED [None]
